FAERS Safety Report 11330064 (Version 4)
Quarter: 2017Q2

REPORT INFORMATION
  Report Type: Spontaneous
  Country: US (occurrence: US)
  Receive Date: 20150803
  Receipt Date: 20170403
  Transmission Date: 20170829
  Serious: Yes (Death, Hospitalization)
  Sender: FDA-Public Use
  Company Number: US-ELI_LILLY_AND_COMPANY-US201507002099

PATIENT
  Sex: Female
  Weight: 43.99 kg

DRUGS (4)
  1. REMODULIN [Suspect]
     Active Substance: TREPROSTINIL
     Indication: PULMONARY HYPERTENSION
     Dosage: 48 NG, OTHER (48 NG/KG/MIN)
     Route: 042
     Dates: start: 20111228
  2. REMODULIN [Suspect]
     Active Substance: TREPROSTINIL
     Dosage: 51 NG/KG/MIN, CONTINUOUS
     Route: 042
  3. ADCIRCA [Suspect]
     Active Substance: TADALAFIL
     Indication: PRODUCT USED FOR UNKNOWN INDICATION
     Dosage: UNK, UNKNOWN
     Route: 065
  4. REMODULIN [Suspect]
     Active Substance: TREPROSTINIL
     Dosage: 51 NG/KG/MIN, CONTINUOUS
     Route: 042

REACTIONS (12)
  - Diarrhoea [Unknown]
  - Diarrhoea [Not Recovered/Not Resolved]
  - Asthenia [Unknown]
  - Malaise [Unknown]
  - Death [Fatal]
  - Weight decreased [Not Recovered/Not Resolved]
  - Dysgeusia [Unknown]
  - Parosmia [Unknown]
  - Haematochezia [Unknown]
  - Eating disorder [Unknown]
  - Decreased appetite [Unknown]
  - Peripheral swelling [Unknown]
